FAERS Safety Report 17697365 (Version 3)
Quarter: 2021Q2

REPORT INFORMATION
  Report Type: Spontaneous
  Country: US (occurrence: US)
  Receive Date: 20200423
  Receipt Date: 20210416
  Transmission Date: 20210716
  Serious: Yes (Other)
  Sender: FDA-Public Use
  Company Number: US-ASTRAZENECA-2020SE51850

PATIENT
  Age: 15101 Day
  Sex: Male
  Weight: 72.1 kg

DRUGS (25)
  1. NEXIUM [Suspect]
     Active Substance: ESOMEPRAZOLE MAGNESIUM
     Route: 048
     Dates: start: 200601, end: 201712
  2. PREDNISONE. [Concomitant]
     Active Substance: PREDNISONE
  3. VALTURNA [Concomitant]
     Active Substance: ALISKIREN HEMIFUMARATE\VALSARTAN
  4. PROTONIX [Suspect]
     Active Substance: PANTOPRAZOLE SODIUM
     Route: 065
     Dates: start: 200601, end: 201712
  5. HYDROCORTISONE. [Concomitant]
     Active Substance: HYDROCORTISONE
  6. CLOPIDOGREL [Concomitant]
     Active Substance: CLOPIDOGREL BISULFATE
  7. BREO ELLIPTA [Concomitant]
     Active Substance: FLUTICASONE FUROATE\VILANTEROL TRIFENATATE
  8. SYNTHROID [Concomitant]
     Active Substance: LEVOTHYROXINE SODIUM
  9. CARVEDILOL. [Concomitant]
     Active Substance: CARVEDILOL
  10. FOLIC ACID. [Concomitant]
     Active Substance: FOLIC ACID
  11. KLOR?CON [Concomitant]
     Active Substance: POTASSIUM CHLORIDE
  12. CRESTOR [Concomitant]
     Active Substance: ROSUVASTATIN CALCIUM
  13. CYCLOBENZAPRINE. [Concomitant]
     Active Substance: CYCLOBENZAPRINE
  14. PRILOSEC OTC [Suspect]
     Active Substance: OMEPRAZOLE MAGNESIUM
     Route: 048
     Dates: start: 200601, end: 201712
  15. ISOSORBIDE. [Concomitant]
     Active Substance: ISOSORBIDE
  16. LISINOPRIL. [Concomitant]
     Active Substance: LISINOPRIL
  17. VIMPAT [Concomitant]
     Active Substance: LACOSAMIDE
  18. VITAMIN D [Concomitant]
     Active Substance: VITAMIN D NOS
  19. CHANTIX [Concomitant]
     Active Substance: VARENICLINE TARTRATE
  20. OXYCODONE?ACETAMINOPHEN [Concomitant]
     Active Substance: ACETAMINOPHEN\OXYCODONE HYDROCHLORIDE
  21. ATORVASTATIN [Concomitant]
     Active Substance: ATORVASTATIN
  22. SKELAXIN [Concomitant]
     Active Substance: METAXALONE
  23. ONDANSETRON [Concomitant]
     Active Substance: ONDANSETRON
  24. PLAVIX [Concomitant]
     Active Substance: CLOPIDOGREL BISULFATE
  25. METOPROLOL TARTRATE. [Concomitant]
     Active Substance: METOPROLOL TARTRATE

REACTIONS (3)
  - Acute kidney injury [Not Recovered/Not Resolved]
  - Chronic kidney disease [Unknown]
  - Renal failure [Unknown]

NARRATIVE: CASE EVENT DATE: 20121010
